FAERS Safety Report 15183673 (Version 2)
Quarter: 2018Q3

REPORT INFORMATION
  Report Type: Report from Study
  Country: US (occurrence: US)
  Receive Date: 20180723
  Receipt Date: 20180809
  Transmission Date: 20181010
  Serious: Yes (Hospitalization)
  Sender: FDA-Public Use
  Company Number: US-ACTELION-A-NJ2018-175744

PATIENT
  Age: 76 Year
  Sex: Female
  Weight: 78.5 kg

DRUGS (21)
  1. BETAMETHASONE. [Concomitant]
     Active Substance: BETAMETHASONE
     Dosage: UNK
     Route: 061
     Dates: start: 20180430
  2. LEVOFLOXACIN. [Concomitant]
     Active Substance: LEVOFLOXACIN
     Dosage: 500 MG, QD
     Route: 048
     Dates: start: 20180627
  3. CHERATUSSIN AC [Concomitant]
     Active Substance: CODEINE PHOSPHATE\GUAIFENESIN
     Dosage: 10?100 MG/5 ML, PRN
     Route: 048
     Dates: start: 20180709
  4. HYDROCODONE/HOMATROPINE [Concomitant]
     Active Substance: HOMATROPINE METHYLBROMIDE\HYDROCODONE BITARTRATE
     Dosage: 5?1.5MG/5ML
     Route: 048
     Dates: start: 20180625
  5. TRAZODONE [Concomitant]
     Active Substance: TRAZODONE HYDROCHLORIDE
     Dosage: 50 MG, QD
     Route: 048
     Dates: start: 20180612
  6. ESCITALOPRAM [Concomitant]
     Active Substance: ESCITALOPRAM OXALATE
     Dosage: 20 MG, QD
     Route: 048
     Dates: start: 20180529
  7. FOLIC ACID. [Concomitant]
     Active Substance: FOLIC ACID
     Dosage: 1 MG, QD
     Route: 048
     Dates: start: 20180606
  8. HYDROXYCHLOROQUINE [Concomitant]
     Active Substance: HYDROXYCHLOROQUINE
     Dosage: 200 MG, QD
     Route: 048
     Dates: start: 20180427
  9. KENALOG [Concomitant]
     Active Substance: TRIAMCINOLONE ACETONIDE
     Dosage: 120 MG, QD
     Route: 058
     Dates: start: 20180627
  10. LEVOFLOXACIN. [Concomitant]
     Active Substance: LEVOFLOXACIN
     Dosage: 750 MG, QD
     Route: 048
     Dates: start: 20180705
  11. SULFASALAZINE. [Concomitant]
     Active Substance: SULFASALAZINE
     Dosage: 500 MG, Q6HRS
     Route: 048
     Dates: start: 20180606
  12. BENZONATATE. [Concomitant]
     Active Substance: BENZONATATE
     Dosage: 100 MG, PRN
     Route: 048
     Dates: start: 20180705
  13. EZETIMIBE. [Concomitant]
     Active Substance: EZETIMIBE
     Dosage: 10 MG, QD
     Route: 048
     Dates: start: 20180612
  14. HUMIRA [Concomitant]
     Active Substance: ADALIMUMAB
     Dosage: UNK
     Route: 058
     Dates: start: 20171219
  15. PREDNISONE. [Concomitant]
     Active Substance: PREDNISONE
     Dosage: 20 MG, UNK
     Route: 048
     Dates: start: 20180705
  16. OPSUMIT [Suspect]
     Active Substance: MACITENTAN
     Indication: PULMONARY ARTERIAL HYPERTENSION
     Dosage: 10 MG, QD
     Route: 048
     Dates: start: 20171219
  17. HUMIRA [Concomitant]
     Active Substance: ADALIMUMAB
     Dosage: 40MG/.8ML
     Route: 058
     Dates: start: 20180625
  18. TRIAMCINOLONE [Concomitant]
     Active Substance: TRIAMCINOLONE
     Dosage: UNK
     Route: 061
     Dates: start: 20180515
  19. ATORVASTATIN [Concomitant]
     Active Substance: ATORVASTATIN
     Dosage: 20 MG, QD
     Route: 048
     Dates: start: 20180409
  20. MAGNESIUM [Concomitant]
     Active Substance: MAGNESIUM
     Dosage: 250 MG, UNK
     Route: 048
     Dates: start: 20171219
  21. FOLIVANE F [Concomitant]
     Dosage: 125MG?1MG?40MG?3MG
     Dates: start: 20180614

REACTIONS (7)
  - Cough [Unknown]
  - Fatigue [Unknown]
  - Interstitial lung disease [Recovering/Resolving]
  - Pneumonia viral [Recovering/Resolving]
  - Concomitant disease aggravated [Recovering/Resolving]
  - Dyspnoea [Unknown]
  - Decreased activity [Unknown]

NARRATIVE: CASE EVENT DATE: 20180627
